FAERS Safety Report 9410137 (Version 1)
Quarter: 2013Q3

REPORT INFORMATION
  Report Type: Report from Study
  Country: US (occurrence: US)
  Receive Date: 20130719
  Receipt Date: 20130719
  Transmission Date: 20140515
  Serious: Yes (Hospitalization)
  Sender: FDA-Public Use
  Company Number: US-ACTELION-A-US2013-86072

PATIENT
  Age: 76 Year
  Sex: Male

DRUGS (3)
  1. TRACLEER [Suspect]
     Indication: OBSTRUCTIVE AIRWAYS DISORDER
     Dosage: UNK
     Route: 048
  2. ILOPROST [Suspect]
     Indication: OBSTRUCTIVE AIRWAYS DISORDER
     Dosage: 20
     Route: 055
  3. COUMADIN [Concomitant]

REACTIONS (1)
  - Drug dose omission [Unknown]
